FAERS Safety Report 24247850 (Version 1)
Quarter: 2024Q3

REPORT INFORMATION
  Report Type: Spontaneous
  Country: FR (occurrence: FR)
  Receive Date: 20240826
  Receipt Date: 20240826
  Transmission Date: 20241016
  Serious: Yes (Other)
  Sender: TAKEDA
  Company Number: None

PATIENT
  Age: 47 Year
  Sex: Male

DRUGS (2)
  1. BRINTELLIX [Suspect]
     Active Substance: VORTIOXETINE HYDROBROMIDE
     Indication: Depression
     Dosage: 1 DOSAGE FORM, QD
     Route: 048
     Dates: start: 20230701
  2. ABILIFY [Concomitant]
     Active Substance: ARIPIPRAZOLE
     Indication: Depression
     Dosage: UNK

REACTIONS (3)
  - Suicidal ideation [Not Recovered/Not Resolved]
  - Condition aggravated [Not Recovered/Not Resolved]
  - Irritability [Recovering/Resolving]

NARRATIVE: CASE EVENT DATE: 20231206
